FAERS Safety Report 24234561 (Version 3)
Quarter: 2025Q2

REPORT INFORMATION
  Report Type: Spontaneous
  Country: US (occurrence: US)
  Receive Date: 20240821
  Receipt Date: 20250515
  Transmission Date: 20250717
  Serious: Yes (Other)
  Sender: PFIZER
  Company Number: US-PFIZER INC-202400240408

PATIENT
  Age: 86 Year
  Sex: Male

DRUGS (11)
  1. CIBINQO [Suspect]
     Active Substance: ABROCITINIB
     Indication: Dermatitis atopic
     Dosage: 100 MG, 1X/DAY
     Route: 048
     Dates: start: 20240619
  2. CIBINQO [Suspect]
     Active Substance: ABROCITINIB
     Dosage: 100MG BY MOUTH DAILY
     Route: 048
  3. PRAVASTATIN [Concomitant]
     Active Substance: PRAVASTATIN
  4. ASPIRIN [Concomitant]
     Active Substance: ASPIRIN
  5. DOXAZOSIN [Concomitant]
     Active Substance: DOXAZOSIN MESYLATE
  6. VITAMINS NOS [Concomitant]
     Active Substance: VITAMINS
  7. OLMESARTAN [Concomitant]
     Active Substance: OLMESARTAN
  8. GABAPENTIN [Concomitant]
     Active Substance: GABAPENTIN
  9. AMLODIPINE [Concomitant]
     Active Substance: AMLODIPINE BESYLATE
  10. SOLIFENACIN [Concomitant]
     Active Substance: SOLIFENACIN
  11. POTASSIUM CHLORIDE [Concomitant]
     Active Substance: POTASSIUM CHLORIDE

REACTIONS (3)
  - Diabetes mellitus [Unknown]
  - Blood iron decreased [Unknown]
  - Weight increased [Unknown]
